FAERS Safety Report 9925595 (Version 3)
Quarter: 2014Q2

REPORT INFORMATION
  Report Type: Spontaneous
  Country: US (occurrence: US)
  Receive Date: 20140226
  Receipt Date: 20140516
  Transmission Date: 20141212
  Serious: Yes (Other)
  Sender: FDA-Public Use
  Company Number: US-PFIZER INC-2014055160

PATIENT
  Age: 34 Year
  Sex: Male
  Weight: 61.22 kg

DRUGS (1)
  1. ADVIL [Suspect]
     Indication: NECK PAIN
     Dosage: 400 MG, DAILY
     Route: 048
     Dates: start: 20140217, end: 20140221

REACTIONS (3)
  - Coeliac disease [Recovered/Resolved]
  - Product formulation issue [Recovered/Resolved]
  - Malaise [Recovered/Resolved]
